FAERS Safety Report 19726481 (Version 10)
Quarter: 2022Q1

REPORT INFORMATION
  Report Type: Report from Study
  Country: CL (occurrence: CL)
  Receive Date: 20210820
  Receipt Date: 20220206
  Transmission Date: 20220423
  Serious: Yes (Hospitalization, Other)
  Sender: FDA-Public Use
  Company Number: NVSC2019CL094383

PATIENT
  Age: 51 Year
  Sex: Female

DRUGS (15)
  1. KISQALI [Suspect]
     Active Substance: RIBOCICLIB
     Indication: Breast cancer
     Dosage: 400 MG, QD
     Route: 048
     Dates: start: 20190514
  2. KISQALI [Suspect]
     Active Substance: RIBOCICLIB
     Dosage: 400 MG, QD
     Route: 048
     Dates: start: 20190516
  3. KISQALI [Suspect]
     Active Substance: RIBOCICLIB
     Dosage: 600 MG
     Route: 065
  4. KISQALI [Suspect]
     Active Substance: RIBOCICLIB
     Dosage: 400 MG, QD
     Route: 048
     Dates: start: 20190516
  5. KISQALI [Suspect]
     Active Substance: RIBOCICLIB
     Dosage: 400 MG, QD (2)
     Route: 048
     Dates: start: 20190516
  6. KISQALI [Suspect]
     Active Substance: RIBOCICLIB
     Dosage: 400 MG
     Route: 048
     Dates: start: 20191109
  7. KISQALI [Suspect]
     Active Substance: RIBOCICLIB
     Dosage: 2 DF (DOSE REDUCED TO 2 TABLETS)
     Route: 048
  8. KISQALI [Suspect]
     Active Substance: RIBOCICLIB
     Dosage: 400 MG, QD
     Route: 048
  9. KISQALI [Suspect]
     Active Substance: RIBOCICLIB
     Dosage: 400 MG, QD
     Route: 048
     Dates: start: 20190516
  10. KISQALI [Suspect]
     Active Substance: RIBOCICLIB
     Dosage: 400 MG, QD
     Route: 048
     Dates: start: 20190518
  11. FEMARA [Suspect]
     Active Substance: LETROZOLE
     Indication: Breast cancer
     Dosage: UNK
     Route: 065
  12. FULVESTRANT [Suspect]
     Active Substance: FULVESTRANT
     Indication: Breast cancer
     Dosage: UNK (FIRST MONTH WAS EVERY 15 DAYS THEN ON A MONTHLY BASIS)
     Route: 065
  13. OSTEOKER [Concomitant]
     Indication: Bone cancer
     Dosage: UNK (3 CYCLE AND THEN REST FOR A WHILE (EVERY 3 MONTH))
     Route: 042
  14. VISCUM ALBUM FRUITING TOP [Concomitant]
     Active Substance: VISCUM ALBUM FRUITING TOP
     Indication: Product used for unknown indication
     Dosage: UNK
     Route: 065
  15. LEVOTHYROXINE SODIUM [Concomitant]
     Active Substance: LEVOTHYROXINE SODIUM
     Indication: Product used for unknown indication
     Dosage: UNK
     Route: 065

REACTIONS (47)
  - Osteonecrosis [Unknown]
  - Metastasis [Unknown]
  - Neutrophil count decreased [Unknown]
  - Malignant neoplasm progression [Unknown]
  - Breast cancer [Unknown]
  - Rectal cancer [Unknown]
  - Second primary malignancy [Unknown]
  - Metastases to bone [Unknown]
  - Bone pain [Unknown]
  - Pain [Unknown]
  - Back pain [Unknown]
  - Illness [Unknown]
  - Sinus bradycardia [Unknown]
  - Full blood count abnormal [Unknown]
  - Mean cell volume increased [Unknown]
  - Mean cell haemoglobin increased [Unknown]
  - Red cell distribution width increased [Unknown]
  - Anisocytosis [Unknown]
  - Macrocytosis [Unknown]
  - Elliptocytosis [Unknown]
  - Confusional state [Unknown]
  - Pain in extremity [Unknown]
  - Movement disorder [Unknown]
  - Polychromic red blood cells present [Unknown]
  - Neutrophil toxic granulation present [Unknown]
  - Red blood cell poikilocytes present [Unknown]
  - Lymphocyte percentage abnormal [Unknown]
  - Red blood cell count increased [Unknown]
  - Blood alkaline phosphatase decreased [Unknown]
  - Vision blurred [Unknown]
  - Red blood cell count decreased [Unknown]
  - Blood creatinine abnormal [Unknown]
  - Blood urea abnormal [Unknown]
  - Platelet count increased [Unknown]
  - White blood cell count increased [Unknown]
  - Aspartate aminotransferase increased [Unknown]
  - Platelet count decreased [Unknown]
  - Platelet count decreased [Recovered/Resolved]
  - Gait disturbance [Unknown]
  - Visual impairment [Unknown]
  - Eating disorder [Unknown]
  - Overweight [Unknown]
  - Insomnia [Unknown]
  - Anxiety [Unknown]
  - Depressed mood [Unknown]
  - Cytogenetic analysis abnormal [Unknown]
  - Inappropriate schedule of product administration [Unknown]

NARRATIVE: CASE EVENT DATE: 20170720
